FAERS Safety Report 4480868-3 (Version None)
Quarter: 2004Q4

REPORT INFORMATION
  Report Type: 
  Country: None (occurrence: None)
  Receive Date: 20040923
  Receipt Date: 20040709
  Transmission Date: 20050328
  Serious: No
  Sender: FDA-Public Use
  Company Number: USA030741393

PATIENT
  Age: 77 Year
  Sex: Male
  Weight: 73 kg

DRUGS (1)
  1. FORTEO [Suspect]
     Indication: OSTEOPOROSIS
     Dosage: 20 UG DAY
     Dates: start: 20030607

REACTIONS (7)
  - ARTHRALGIA [None]
  - BONE PAIN [None]
  - FALL [None]
  - NAUSEA [None]
  - NECK PAIN [None]
  - PAIN [None]
  - WEIGHT DECREASED [None]
